FAERS Safety Report 7646682-2 (Version None)
Quarter: 2011Q3

REPORT INFORMATION
  Report Type: 
  Country: None (occurrence: None)
  Receive Date: 20110729
  Receipt Date: 20110729
  Transmission Date: 20111222
  Serious: Yes (Hospitalization)
  Sender: FDA-Public Use
  Company Number: None

PATIENT
  Sex: Male
  Weight: 77.1115 kg

DRUGS (2)
  1. SULFATRIM-DS [Suspect]
     Indication: ABSCESS LIMB
     Dosage: 20 PILLS 2 DAILY 10 DAYS ORAL
     Route: 048
  2. BACTRIM DS [Suspect]

REACTIONS (3)
  - RASH [None]
  - OEDEMA PERIPHERAL [None]
  - SWELLING FACE [None]
